FAERS Safety Report 9173477 (Version 1)
Quarter: 2013Q1

REPORT INFORMATION
  Report Type: Spontaneous
  Country: CA (occurrence: None)
  Receive Date: 20130314
  Receipt Date: 20130314
  Transmission Date: 20140127
  Serious: Yes (Other)
  Sender: FDA-Public Use
  Company Number: 2013/052

PATIENT
  Age: 10 Year
  Sex: Female

DRUGS (5)
  1. DIVALPROEX [Suspect]
     Indication: CONVULSION
     Dosage: DAILY DOSES OF 125 MG A.M., 62.5 MG P.M. AND 125 MG AT NIGHT.
     Route: 048
  2. TOPIRAMATE [Suspect]
     Indication: CONVULSION
     Dosage: 25 MG A.M., 12.5 MG P.M., AND 25 MG AT NIGHT.
     Route: 048
  3. CARNITINE [Concomitant]
  4. LANSOPRAZOLE [Concomitant]
  5. CALCIUM CARBONATE [Concomitant]

REACTIONS (9)
  - Blood alkaline phosphatase increased [None]
  - Growth retardation [None]
  - Dysmorphism [None]
  - Metabolic acidosis [None]
  - Hypophosphataemic rickets [None]
  - Nephrocalcinosis [None]
  - Osteopenia [None]
  - Fanconi syndrome acquired [None]
  - Renal tubular acidosis [None]
